FAERS Safety Report 8484193 (Version 2)
Quarter: 2012Q4

REPORT INFORMATION
  Report Type: 
  Country: JP (occurrence: JP)
  Receive Date: 20120330
  Receipt Date: 20120925
  Transmission Date: 20130627
  Serious: Yes (Death, Other)
  Sender: FDA-Public Use
  Company Number: PHHY2012JP026729

PATIENT
  Age: 69 Year
  Sex: Female

DRUGS (5)
  1. GLIVEC [Suspect]
     Indication: HYPEREOSINOPHILIC SYNDROME
     Dosage: UNK UKN, UNK
  2. HYDROXYCARBAMIDE [Concomitant]
     Indication: HYPEREOSINOPHILIC SYNDROME
     Dosage: UNK UKN, UNK
     Dates: start: 201012
  3. 6-MP [Concomitant]
     Indication: HYPEREOSINOPHILIC SYNDROME
     Dosage: UNK UKN, UNK
  4. CYTARABINE [Concomitant]
     Indication: HYPEREOSINOPHILIC SYNDROME
     Dosage: UNK UKN, UNK
  5. ETOPOSIDE [Concomitant]
     Indication: HYPEREOSINOPHILIC SYNDROME
     Dosage: UNK UKN, UNK

REACTIONS (4)
  - Cardio-respiratory arrest [Fatal]
  - Chronic eosinophilic leukaemia [Unknown]
  - Decreased appetite [Unknown]
  - Drug ineffective [Unknown]
